FAERS Safety Report 4652438-5 (Version None)
Quarter: 2005Q2

REPORT INFORMATION
  Report Type: 
  Country: None (occurrence: None)
  Receive Date: 20050502
  Receipt Date: 20050418
  Transmission Date: 20051028
  Serious: Yes (Hospitalization)
  Sender: FDA-Public Use
  Company Number: 2005-01398

PATIENT
  Age: 37 Year
  Sex: Female

DRUGS (1)
  1. INFED [Suspect]
     Indication: IRON DEFICIENCY ANAEMIA
     Dosage: INTRAVENOUS
     Route: 042

REACTIONS (2)
  - ANAPHYLACTIC SHOCK [None]
  - MYOCARDIAL INFARCTION [None]
